FAERS Safety Report 7308737-1 (Version None)
Quarter: 2011Q1

REPORT INFORMATION
  Report Type: 
  Country: None (occurrence: None)
  Receive Date: 20110223
  Receipt Date: 20110211
  Transmission Date: 20110831
  Serious: Yes (Other)
  Sender: FDA-Public Use
  Company Number: PHHY2011AR11826

PATIENT
  Sex: Female

DRUGS (1)
  1. ACLASTA [Suspect]
     Indication: OSTEOPOROSIS
     Dosage: 5MG ANNUALLY
     Dates: start: 20110201

REACTIONS (5)
  - DIZZINESS [None]
  - CONVULSION [None]
  - FEELING ABNORMAL [None]
  - NAUSEA [None]
  - PYREXIA [None]
